FAERS Safety Report 6586537-8 (Version None)
Quarter: 2010Q1

REPORT INFORMATION
  Report Type: 
  Country: None (occurrence: None)
  Receive Date: 20100216
  Receipt Date: 20100216
  Transmission Date: 20100710
  Serious: Yes (Other)
  Sender: FDA-Public Use
  Company Number: None

PATIENT
  Age: 39 Year
  Sex: Male
  Weight: 107.9561 kg

DRUGS (2)
  1. MOTRIN [Suspect]
     Dates: start: 20100213, end: 20100213
  2. MOTRIN [Suspect]
     Dates: start: 20100215, end: 20100215

REACTIONS (2)
  - MALAISE [None]
  - PRODUCT QUALITY ISSUE [None]
